FAERS Safety Report 5110898-X (Version None)
Quarter: 2006Q3

REPORT INFORMATION
  Report Type: 
  Country: None (occurrence: None)
  Receive Date: 20060919
  Receipt Date: 20060908
  Transmission Date: 20061208
  Serious: Yes (Disabling, Other)
  Sender: FDA-Public Use
  Company Number: CN-2006-025350

PATIENT
  Age: 72 Year
  Sex: Male
  Weight: 60 kg

DRUGS (2)
  1. FLUDARA [Suspect]
     Indication: CHRONIC LYMPHOCYTIC LEUKAEMIA
     Dosage: 50 MG/D, CYCLE X 5D, IV DRIP
     Route: 041
     Dates: start: 20050831, end: 20050904
  2. INSULIN (INSULIN) [Concomitant]

REACTIONS (4)
  - BONE MARROW FAILURE [None]
  - DEAFNESS [None]
  - DIARRHOEA [None]
  - RENAL IMPAIRMENT [None]
